FAERS Safety Report 23375968 (Version 2)
Quarter: 2024Q1

REPORT INFORMATION
  Report Type: Spontaneous
  Country: US (occurrence: US)
  Receive Date: 20240108
  Receipt Date: 20240129
  Transmission Date: 20240409
  Serious: No
  Sender: FDA-Public Use
  Company Number: US-SA-SAC20240104001434

PATIENT
  Sex: Female
  Weight: 117 kg

DRUGS (1)
  1. DUPIXENT [Suspect]
     Active Substance: DUPILUMAB
     Indication: Dermatitis atopic
     Dosage: 300 MG, QOW
     Route: 058

REACTIONS (7)
  - Constipation [Unknown]
  - Injection site warmth [Unknown]
  - Injection site discolouration [Unknown]
  - Injection site induration [Unknown]
  - Injection site erythema [Unknown]
  - Injection site rash [Unknown]
  - Injection site bruising [Unknown]
